FAERS Safety Report 17759884 (Version 1)
Quarter: 2020Q2

REPORT INFORMATION
  Report Type: Spontaneous
  Country: US (occurrence: US)
  Receive Date: 20200507
  Receipt Date: 20200507
  Transmission Date: 20200714
  Serious: No
  Sender: FDA-Public Use
  Company Number: None

PATIENT
  Sex: Male

DRUGS (2)
  1. TRADJENTA [Suspect]
     Active Substance: LINAGLIPTIN
  2. GLIPIZIDE. [Suspect]
     Active Substance: GLIPIZIDE

REACTIONS (1)
  - Drug ineffective [None]
